FAERS Safety Report 8998001 (Version 1)
Quarter: 2013Q1

REPORT INFORMATION
  Report Type: Spontaneous
  Country: US (occurrence: US)
  Receive Date: 20130104
  Receipt Date: 20130104
  Transmission Date: 20140127
  Serious: Yes (Death, Hospitalization, Other)
  Sender: FDA-Public Use
  Company Number: US-BAYER-2012-135666

PATIENT
  Age: 62 Year
  Sex: Female
  Weight: 78 kg

DRUGS (8)
  1. ALEVE CAPLET/TABLET,MIDOL EXTENDED RELIEF CAPLET [Suspect]
     Indication: RHEUMATOID ARTHRITIS
  2. ALEVE CAPLET/TABLET,MIDOL EXTENDED RELIEF CAPLET [Suspect]
     Indication: OSTEOARTHRITIS
  3. IBUPROFEN [Suspect]
     Indication: RHEUMATOID ARTHRITIS
  4. IBUPROFEN [Suspect]
     Indication: OSTEOARTHRITIS
  5. CELECOXIB [Suspect]
     Indication: OSTEOARTHRITIS
  6. CELECOXIB [Suspect]
     Indication: RHEUMATOID ARTHRITIS
  7. NEXIUM [Concomitant]
     Indication: PROPHYLAXIS
     Dosage: 40 MG, QD
     Route: 048
     Dates: start: 20111015
  8. MULTIVITAMINS [Concomitant]
     Indication: VITAMIN SUPPLEMENTATION
     Dosage: 1 DF, QD
     Route: 048

REACTIONS (5)
  - Sepsis [Fatal]
  - Blood pressure decreased [None]
  - Small intestinal obstruction [None]
  - Nausea [Fatal]
  - Vomiting [Fatal]
